FAERS Safety Report 10068628 (Version 1)
Quarter: 2014Q2

REPORT INFORMATION
  Report Type: Spontaneous
  Country: US (occurrence: US)
  Receive Date: 20140409
  Receipt Date: 20140409
  Transmission Date: 20141212
  Serious: Yes (Hospitalization)
  Sender: FDA-Public Use
  Company Number: US-GLAXOSMITHKLINE-A1068745A

PATIENT
  Age: 57 Year
  Sex: Female

DRUGS (1)
  1. REQUIP [Suspect]
     Indication: RESTLESS LEGS SYNDROME
     Dosage: 4MG UNKNOWN
     Route: 065
     Dates: start: 20081211

REACTIONS (2)
  - Investigation [Unknown]
  - Oral surgery [Unknown]
